FAERS Safety Report 5824841-9 (Version None)
Quarter: 2008Q3

REPORT INFORMATION
  Report Type: 
  Country: None (occurrence: None)
  Receive Date: 20080728
  Receipt Date: 20080709
  Transmission Date: 20090109
  Serious: No
  Sender: FDA-Public Use
  Company Number: US-BOEHRINGER INGELHEIM GMBH, GERMANY-2008-BP-08743BP

PATIENT
  Age: 78 Year
  Sex: Female

DRUGS (20)
  1. SPIRIVA [Suspect]
     Indication: CHRONIC OBSTRUCTIVE PULMONARY DISEASE
     Route: 055
     Dates: start: 20070101
  2. ADVAIR DISKUS 100/50 [Concomitant]
     Indication: CHRONIC OBSTRUCTIVE PULMONARY DISEASE
  3. ALBUTEROL [Concomitant]
     Indication: CHRONIC OBSTRUCTIVE PULMONARY DISEASE
  4. GLIPIZIDE [Concomitant]
     Indication: DIABETES MELLITUS
  5. ACTOS [Concomitant]
     Indication: DIABETES MELLITUS
  6. VERAPAMIL [Concomitant]
     Indication: HYPERTENSION
  7. PREDNISONE [Concomitant]
     Indication: MYALGIA
  8. LEVOTHYROXINE SODIUM [Concomitant]
     Indication: THYROID DISORDER
  9. ASPIRIN [Concomitant]
  10. VYTORIN [Concomitant]
     Indication: BLOOD CHOLESTEROL INCREASED
  11. WARFARIN SODIUM [Concomitant]
  12. XALATAN [Concomitant]
     Indication: GLAUCOMA
  13. PRILOSEC [Concomitant]
     Indication: BARRETT'S OESOPHAGUS
  14. PRILOSEC [Concomitant]
     Indication: HIATUS HERNIA
  15. MAXZIDE [Concomitant]
     Indication: SWELLING
  16. OXYGEN [Concomitant]
  17. DIURETIC (UNSPECIFIED) [Concomitant]
  18. PROTONIX [Concomitant]
  19. SINGULAIR [Concomitant]
  20. LIPITOR [Concomitant]

REACTIONS (1)
  - DRY MOUTH [None]
